FAERS Safety Report 4794256-3 (Version None)
Quarter: 2005Q4

REPORT INFORMATION
  Report Type: 
  Country: None (occurrence: None)
  Receive Date: 20051011
  Receipt Date: 20051007
  Transmission Date: 20060501
  Serious: Yes (Disabling)
  Sender: FDA-Public Use
  Company Number: US-GLAXOSMITHKLINE-A0577535A

PATIENT
  Sex: Male

DRUGS (5)
  1. REQUIP [Suspect]
     Indication: RESTLESS LEGS SYNDROME
     Route: 048
  2. LASIX [Concomitant]
  3. ANTI-CHOLESTEROL MEDICATION [Concomitant]
  4. ORAL HYPOGLYCEMIC [Concomitant]
  5. ANTIHYPERTENSIVE (UNSPECIFIED) [Concomitant]

REACTIONS (2)
  - AKATHISIA [None]
  - TREMOR [None]
